FAERS Safety Report 6525992-6 (Version None)
Quarter: 2009Q4

REPORT INFORMATION
  Report Type: 
  Country: None (occurrence: None)
  Receive Date: 20091222
  Receipt Date: 20091214
  Transmission Date: 20100525
  Serious: Yes (Death)
  Sender: FDA-Public Use
  Company Number: 2009US004149

PATIENT
  Age: 66 Year
  Sex: Male

DRUGS (5)
  1. AMBISOME [Suspect]
     Indication: CANDIDA PNEUMONIA
     Dosage: 2.5 MG/KG, UID/QD, IV NOS
     Route: 042
     Dates: start: 20091001, end: 20091024
  2. FIRSTCIN (CEFOZOPRAN HYDROCHLORIDE) [Concomitant]
  3. MEROPEN (MEROPENEM TRIHYDRATE) [Concomitant]
  4. PASIL (PAZUFLOXACIN) [Concomitant]
  5. ZOSYN [Concomitant]

REACTIONS (2)
  - CONTINUOUS HAEMODIAFILTRATION [None]
  - RENAL FAILURE ACUTE [None]
